FAERS Safety Report 18642285 (Version 1)
Quarter: 2020Q4

REPORT INFORMATION
  Report Type: Spontaneous
  Country: US (occurrence: US)
  Receive Date: 20201221
  Receipt Date: 20201221
  Transmission Date: 20210114
  Serious: Yes (Hospitalization)
  Sender: FDA-Public Use
  Company Number: US-ROCHE-2736222

PATIENT
  Age: 66 Year
  Sex: Female

DRUGS (11)
  1. ESBRIET [Suspect]
     Active Substance: PIRFENIDONE
     Indication: IDIOPATHIC PULMONARY FIBROSIS
     Dosage: 1 TABLET;ONGOING:YES
     Route: 048
     Dates: start: 20190730
  2. PREDNISONE. [Concomitant]
     Active Substance: PREDNISONE
  3. COENZYME Q10 [Concomitant]
     Active Substance: DIETARY SUPPLEMENT\UBIDECARENONE
  4. LIVALO [Concomitant]
     Active Substance: PITAVASTATIN CALCIUM
  5. LEVOTHYROXINE. [Concomitant]
     Active Substance: LEVOTHYROXINE
  6. PROAIR HFA [Concomitant]
     Active Substance: ALBUTEROL SULFATE
  7. SULFASALAZINE. [Concomitant]
     Active Substance: SULFASALAZINE
  8. FOLIC ACID. [Concomitant]
     Active Substance: FOLIC ACID
  9. ORENCIA [Concomitant]
     Active Substance: ABATACEPT
  10. VITAMIN C [Concomitant]
     Active Substance: ASCORBIC ACID
  11. SPIRIVA [Concomitant]
     Active Substance: TIOTROPIUM BROMIDE MONOHYDRATE

REACTIONS (1)
  - Chest pain [Unknown]

NARRATIVE: CASE EVENT DATE: 20201202
